FAERS Safety Report 5851699-4 (Version None)
Quarter: 2008Q3

REPORT INFORMATION
  Report Type: 
  Country: None (occurrence: None)
  Receive Date: 20080820
  Receipt Date: 20080813
  Transmission Date: 20090109
  Serious: Yes (Hospitalization)
  Sender: FDA-Public Use
  Company Number: FR-BOEHRINGER INGELHEIM GMBH, GERMANY-2008-BP-12984YA

PATIENT
  Sex: Male

DRUGS (13)
  1. TAMSULOSIN HCL [Suspect]
     Indication: BENIGN PROSTATIC HYPERPLASIA
     Route: 048
     Dates: start: 20080613, end: 20080706
  2. CEFIXIME CHEWABLE [Suspect]
     Indication: PROPHYLAXIS URINARY TRACT INFECTION
     Route: 048
     Dates: start: 20080609, end: 20080707
  3. ZYLORIC [Suspect]
     Route: 048
     Dates: start: 20080522, end: 20080627
  4. ZYLORIC [Suspect]
     Route: 048
     Dates: start: 20080702, end: 20080705
  5. NEXIUM [Suspect]
     Route: 048
     Dates: start: 20080522, end: 20080701
  6. THALIDOMIDE [Suspect]
     Indication: MULTIPLE MYELOMA
     Route: 048
     Dates: start: 20080609, end: 20080627
  7. THALIDOMIDE [Suspect]
     Route: 048
     Dates: start: 20080701, end: 20080704
  8. EPREX [Concomitant]
  9. STILNOX [Concomitant]
  10. ROCEPHIN [Concomitant]
     Dates: start: 20080616, end: 20080620
  11. OFLOCET [Concomitant]
     Dates: start: 20080616
  12. ASPEGIC 325 [Concomitant]
     Dates: start: 20080609
  13. PROSCAR [Concomitant]

REACTIONS (2)
  - DRUG RASH WITH EOSINOPHILIA AND SYSTEMIC SYMPTOMS [None]
  - HERPES ZOSTER [None]
